FAERS Safety Report 7321542-5 (Version None)
Quarter: 2011Q1

REPORT INFORMATION
  Report Type: 
  Country: None (occurrence: None)
  Receive Date: 20110228
  Receipt Date: 20100329
  Transmission Date: 20110831
  Serious: No
  Sender: FDA-Public Use
  Company Number: A0852389A

PATIENT
  Sex: Female

DRUGS (4)
  1. ZOVIRAX [Concomitant]
  2. ADVIL LIQUI-GELS [Concomitant]
     Indication: HEADACHE
  3. VALTREX [Suspect]
     Indication: GENITAL HERPES
     Dosage: 1G PER DAY
     Route: 048
     Dates: start: 20100216
  4. LYSINE [Concomitant]

REACTIONS (2)
  - GENITAL HERPES [None]
  - DRUG INEFFECTIVE [None]
